FAERS Safety Report 12282463 (Version 1)
Quarter: 2016Q2

REPORT INFORMATION
  Report Type: Spontaneous
  Country: US (occurrence: US)
  Receive Date: 20160419
  Receipt Date: 20160419
  Transmission Date: 20160815
  Serious: Yes (Hospitalization, Other)
  Sender: FDA-Public Use
  Company Number: ADR-2015-01141

PATIENT
  Age: 62 Year
  Sex: Female

DRUGS (15)
  1. SALMETEROL [Suspect]
     Active Substance: SALMETEROL
  2. DIAZEPAM. [Suspect]
     Active Substance: DIAZEPAM
  3. FLUTICASONE [Suspect]
     Active Substance: FLUTICASONE\FLUTICASONE PROPIONATE
  4. PROMETHAZINE [Suspect]
     Active Substance: PROMETHAZINE\PROMETHAZINE HYDROCHLORIDE
  5. MORPHINE [Suspect]
     Active Substance: MORPHINE
     Dosage: 30MG/DAY
     Route: 037
  6. ATORVASTATIN [Suspect]
     Active Substance: ATORVASTATIN
  7. LISINOPRIL. [Suspect]
     Active Substance: LISINOPRIL
  8. ADVAIR HFA [Suspect]
     Active Substance: FLUTICASONE PROPIONATE\SALMETEROL XINAFOATE
  9. NYSTATIN. [Suspect]
     Active Substance: NYSTATIN
     Route: 061
  10. BUPIVACAINE. [Suspect]
     Active Substance: BUPIVACAINE
     Route: 037
  11. INSULIN [Suspect]
     Active Substance: INSULIN NOS
  12. TIZANIDINE. [Suspect]
     Active Substance: TIZANIDINE
  13. PREDNISONE. [Suspect]
     Active Substance: PREDNISONE
  14. COMPOUNDED BACLOFEN [Suspect]
     Active Substance: BACLOFEN
     Route: 037
  15. OXYCODONE [Suspect]
     Active Substance: OXYCODONE

REACTIONS (3)
  - Vomiting [Recovered/Resolved]
  - Nausea [Recovered/Resolved]
  - Drug withdrawal syndrome [Recovered/Resolved]
